FAERS Safety Report 5338551-8 (Version None)
Quarter: 2007Q2

REPORT INFORMATION
  Report Type: 
  Country: None (occurrence: None)
  Receive Date: 20070530
  Receipt Date: 20070522
  Transmission Date: 20071010
  Serious: Yes (Hospitalization)
  Sender: FDA-Public Use
  Company Number: AU-AVENTIS-200714467GDDC

PATIENT
  Age: 48 Year
  Sex: Female

DRUGS (4)
  1. DOCETAXEL [Suspect]
     Indication: BREAST CANCER METASTATIC
     Route: 042
     Dates: start: 20070426, end: 20070426
  2. BLINDED BEVACIZUMAB [Suspect]
     Indication: BREAST CANCER METASTATIC
     Route: 042
     Dates: start: 20070426
  3. BLINDED BEVACIZUMAB [Suspect]
  4. COVERSYL                           /00790701/ [Concomitant]
     Dosage: DOSE: UNK

REACTIONS (2)
  - NEUTROPENIC INFECTION [None]
  - SYNOVIAL CYST [None]
